FAERS Safety Report 7510725-7 (Version None)
Quarter: 2011Q2

REPORT INFORMATION
  Report Type: 
  Country: None (occurrence: None)
  Receive Date: 20110530
  Receipt Date: 20110516
  Transmission Date: 20111010
  Serious: Yes (Other)
  Sender: FDA-Public Use
  Company Number: PHHY2011JP42988

PATIENT

DRUGS (4)
  1. CYCLOPHOSPHAMIDE [Suspect]
  2. ZOMETA [Suspect]
     Dosage: UNK
  3. HYCAMTIN [Suspect]
     Dosage: UNK
  4. VINCRISTINE [Suspect]

REACTIONS (1)
  - WHITE BLOOD CELL COUNT DECREASED [None]
